FAERS Safety Report 24664440 (Version 1)
Quarter: 2024Q4

REPORT INFORMATION
  Report Type: Spontaneous
  Country: US (occurrence: None)
  Receive Date: 20241125
  Receipt Date: 20241125
  Transmission Date: 20250115
  Serious: Yes (Hospitalization)
  Sender: Public
  Company Number: None

PATIENT
  Age: 74 Year
  Sex: Male
  Weight: 99.8 kg

DRUGS (2)
  1. PEMBROLIZUMAB [Suspect]
     Active Substance: PEMBROLIZUMAB
     Indication: Prostate cancer
     Dosage: OTHER FREQUENCY : ONCE EVERY 21 DAYS;?
     Route: 042
     Dates: start: 20240807
  2. OLAPARIB [Suspect]
     Active Substance: OLAPARIB
     Indication: Prostate cancer
     Dosage: FREQUENCY : DAILY;?
     Route: 048
     Dates: start: 20240807

REACTIONS (5)
  - Penile pain [None]
  - Penile burning sensation [None]
  - Bladder hypertrophy [None]
  - Cystitis radiation [None]
  - Treatment noncompliance [None]

NARRATIVE: CASE EVENT DATE: 20240814
